FAERS Safety Report 5693599-9 (Version None)
Quarter: 2008Q2

REPORT INFORMATION
  Report Type: 
  Country: None (occurrence: None)
  Receive Date: 20080401
  Receipt Date: 20080401
  Transmission Date: 20081010
  Serious: No
  Sender: FDA-Public Use
  Company Number: None

PATIENT
  Age: 12 Year
  Sex: Male
  Weight: 55.7924 kg

DRUGS (2)
  1. SINGULAIR [Suspect]
     Indication: ASTHMA
     Dates: start: 19990101, end: 20080331
  2. SINGULAIR [Suspect]
     Indication: SEASONAL ALLERGY
     Dates: start: 19990101, end: 20080331

REACTIONS (7)
  - ABNORMAL BEHAVIOUR [None]
  - AGGRESSION [None]
  - AGITATION [None]
  - ANGER [None]
  - AUTISM [None]
  - FRUSTRATION [None]
  - MOOD SWINGS [None]
